FAERS Safety Report 13003397 (Version 1)
Quarter: 2016Q4

REPORT INFORMATION
  Report Type: Spontaneous
  Country: JP (occurrence: JP)
  Receive Date: 20161206
  Receipt Date: 20161206
  Transmission Date: 20170207
  Serious: Yes (Other)
  Sender: FDA-Public Use
  Company Number: JP-GILEAD-2016-0243397

PATIENT
  Sex: Female

DRUGS (1)
  1. HARVONI [Suspect]
     Active Substance: LEDIPASVIR\SOFOSBUVIR
     Indication: CHRONIC HEPATITIS C
     Dosage: UNK
     Route: 048
     Dates: start: 20160730, end: 20161018

REACTIONS (11)
  - Lipase increased [Unknown]
  - Somnolence [Unknown]
  - White blood cell count decreased [Unknown]
  - Pancreatitis [Unknown]
  - Eczema [Unknown]
  - Incorrect drug administration duration [Recovered/Resolved]
  - Goitre [Unknown]
  - Blood alkaline phosphatase abnormal [Unknown]
  - Urticaria [Unknown]
  - Diarrhoea [Unknown]
  - Low density lipoprotein increased [Unknown]

NARRATIVE: CASE EVENT DATE: 2016
